FAERS Safety Report 23723749 (Version 1)
Quarter: 2024Q2

REPORT INFORMATION
  Report Type: Spontaneous
  Country: IT (occurrence: IT)
  Receive Date: 20240409
  Receipt Date: 20240409
  Transmission Date: 20240716
  Serious: Yes (Hospitalization, Other)
  Sender: FDA-Public Use
  Company Number: None

PATIENT
  Age: 80 Year
  Sex: Female
  Weight: 64 kg

DRUGS (2)
  1. IMIPENEM AND CILASTATIN [Suspect]
     Active Substance: CILASTATIN SODIUM\IMIPENEM
     Indication: Atypical mycobacterial infection
     Dosage: 750 MG X2/DAY
     Route: 042
     Dates: start: 20240126
  2. TIGECYCLINE [Suspect]
     Active Substance: TIGECYCLINE
     Indication: Atypical mycobacterial infection
     Dosage: 50 MG/DAY
     Route: 042
     Dates: start: 20240126, end: 20240304

REACTIONS (3)
  - Hypokalaemia [Recovered/Resolved]
  - Vomiting [Recovered/Resolved]
  - Decreased appetite [Recovered/Resolved]

NARRATIVE: CASE EVENT DATE: 20240210
